APPROVED DRUG PRODUCT: HYDROCODONE BITARTRATE AND ACETAMINOPHEN
Active Ingredient: ACETAMINOPHEN; HYDROCODONE BITARTRATE
Strength: 325MG;10MG
Dosage Form/Route: TABLET;ORAL
Application: A206245 | Product #003
Applicant: NOVEL LABORATORIES INC
Approved: Dec 1, 2016 | RLD: No | RS: No | Type: DISCN